FAERS Safety Report 4535848-6 (Version None)
Quarter: 2004Q4

REPORT INFORMATION
  Report Type: 
  Country: None (occurrence: None)
  Receive Date: 20041223
  Receipt Date: 20040420
  Transmission Date: 20050328
  Serious: No
  Sender: FDA-Public Use
  Company Number: US-GLAXOSMITHKLINE-A0507673A

PATIENT
  Sex: Male

DRUGS (2)
  1. FLONASE [Suspect]
     Indication: ILL-DEFINED DISORDER
     Dosage: 2SPR TWICE PER DAY
     Route: 045
  2. LIPITOR [Concomitant]

REACTIONS (3)
  - DRUG INEFFECTIVE [None]
  - PHARMACEUTICAL PRODUCT COMPLAINT [None]
  - SNORING [None]
